FAERS Safety Report 4306348-3 (Version None)
Quarter: 2004Q1

REPORT INFORMATION
  Report Type: 
  Country: None (occurrence: None)
  Receive Date: 20040225
  Receipt Date: 20030611
  Transmission Date: 20041129
  Serious: No
  Sender: FDA-Public Use
  Company Number: US-BRISTOL-MYERS SQUIBB COMPANY-12299194

PATIENT
  Age: 44 Year
  Sex: Male
  Weight: 95 kg

DRUGS (2)
  1. EXCEDRIN (MIGRAINE) [Suspect]
     Indication: HEADACHE
     Dosage: ^FLICKED A COUPLE IN MY MOUTH^
     Route: 048
     Dates: start: 20030611
  2. ALBUTEROL [Concomitant]

REACTIONS (4)
  - DIZZINESS [None]
  - DYSPNOEA EXACERBATED [None]
  - MEDICATION ERROR [None]
  - NAUSEA [None]
